FAERS Safety Report 7023401-4 (Version None)
Quarter: 2010Q3

REPORT INFORMATION
  Report Type: 
  Country: None (occurrence: None)
  Receive Date: 20100930
  Receipt Date: 20100922
  Transmission Date: 20110219
  Serious: Yes (Other)
  Sender: FDA-Public Use
  Company Number: BR-ABBOTT-09P-020-0600366-00

PATIENT
  Sex: Female

DRUGS (2)
  1. KALETRA [Suspect]
     Indication: HIV INFECTION
  2. CARBAMAZEPINE [Interacting]
     Indication: PRODUCT USED FOR UNKNOWN INDICATION

REACTIONS (4)
  - AGITATION [None]
  - ANXIETY [None]
  - CONVULSION [None]
  - DRUG INTERACTION [None]
